FAERS Safety Report 21904591 (Version 1)
Quarter: 2023Q1

REPORT INFORMATION
  Report Type: Spontaneous
  Country: US (occurrence: None)
  Receive Date: 20230124
  Receipt Date: 20230124
  Transmission Date: 20230417
  Serious: No
  Sender: FDA-Public Use
  Company Number: None

PATIENT
  Age: 34 Year
  Sex: Male

DRUGS (2)
  1. CEFAZOLIN [Suspect]
     Active Substance: CEFAZOLIN
     Dosage: IV
     Route: 042
     Dates: start: 20220826, end: 20221103
  2. DEXMEDETOMIDINE HYDROCHLORIDE [Suspect]
     Active Substance: DEXMEDETOMIDINE HYDROCHLORIDE
     Dosage: IV
     Route: 042
     Dates: start: 20220826, end: 20221103

REACTIONS (4)
  - Hypotension [None]
  - Tachycardia [None]
  - Hypoxia [None]
  - Respiratory depression [None]

NARRATIVE: CASE EVENT DATE: 20221103
